FAERS Safety Report 5553472-3 (Version None)
Quarter: 2007Q4

REPORT INFORMATION
  Report Type: 
  Country: None (occurrence: None)
  Receive Date: 20071213
  Receipt Date: 20071205
  Transmission Date: 20080405
  Serious: Yes (Other)
  Sender: FDA-Public Use
  Company Number: US-JNJFOC-20071201857

PATIENT
  Sex: Female
  Weight: 66.23 kg

DRUGS (1)
  1. DOXIL [Suspect]
     Indication: FALLOPIAN TUBE CANCER
     Route: 042

REACTIONS (5)
  - PALMAR-PLANTAR ERYTHRODYSAESTHESIA SYNDROME [None]
  - PHARYNGITIS [None]
  - PNEUMONITIS [None]
  - RASH [None]
  - STOMATITIS [None]
